FAERS Safety Report 10579957 (Version 1)
Quarter: 2014Q4

REPORT INFORMATION
  Report Type: Spontaneous
  Country: DE (occurrence: DE)
  Receive Date: 20141112
  Receipt Date: 20141112
  Transmission Date: 20150529
  Serious: Yes (Other)
  Sender: FDA-Public Use
  Company Number: GXKR2014DE004162

PATIENT

DRUGS (3)
  1. LYRICA [Suspect]
     Active Substance: PREGABALIN
     Indication: ANXIETY DISORDER
     Dosage: 150 [MG/D (2 X 75 MG/D) ]/ UNKNOWN IF  ONGOING
     Route: 048
     Dates: start: 20131030, end: 20131217
  2. PROCORALAN [Suspect]
     Active Substance: IVABRADINE
     Indication: ARRHYTHMIA
     Dosage: 10 [MG/D (2 X 5 MG/D) ]/ THERAPY PROBABLY STOPPED
     Route: 048
     Dates: start: 20131030, end: 20131217
  3. CARVEDILOL. [Suspect]
     Active Substance: CARVEDILOL
     Indication: ARRHYTHMIA
     Dosage: 6 [MG/D (2 X 3 MG/D) ]/ THERAPY PROBABLY ONGOING
     Route: 048
     Dates: start: 20131030, end: 20131217

REACTIONS (1)
  - Abortion spontaneous [Recovered/Resolved]
